FAERS Safety Report 10074647 (Version 2)
Quarter: 2014Q2

REPORT INFORMATION
  Report Type: Spontaneous
  Country: US (occurrence: US)
  Receive Date: 20140414
  Receipt Date: 20140515
  Transmission Date: 20141212
  Serious: No
  Sender: FDA-Public Use
  Company Number: US-009507513-1404USA004985

PATIENT
  Sex: Female

DRUGS (1)
  1. ASMANEX TWISTHALER [Suspect]
     Dosage: ASMANEX AER EA 110MCG 1 STANDARD DOSE OF 30, 1 PUFF ONCE DAILY
     Route: 055
     Dates: start: 201401

REACTIONS (3)
  - Drug dose omission [Unknown]
  - Product quality issue [Unknown]
  - No adverse event [Unknown]
